FAERS Safety Report 9064864 (Version 1)
Quarter: 2013Q1

REPORT INFORMATION
  Report Type: Report from Study
  Country: US (occurrence: US)
  Receive Date: 20130131
  Receipt Date: 20130131
  Transmission Date: 20140127
  Serious: No
  Sender: FDA-Public Use
  Company Number: US-ABBOTT-12P-163-1013833-00

PATIENT
  Age: 51 Year
  Sex: Female

DRUGS (6)
  1. HUMIRA [Suspect]
     Indication: COLITIS ULCERATIVE
     Dates: start: 200810
  2. HUMIRA [Suspect]
     Dosage: LOADING DOSE
     Dates: start: 20121020, end: 20121020
  3. HUMIRA [Suspect]
     Dosage: LOADING DOSE
     Dates: start: 20121103
  4. FAMOTIDINE [Concomitant]
     Indication: GASTROOESOPHAGEAL REFLUX DISEASE
     Dosage: 40 MG EVERY DAY
  5. OMEPRAZOLE [Concomitant]
     Indication: GASTROOESOPHAGEAL REFLUX DISEASE
     Dosage: 40 MG EVERY DAY
  6. COLAZAL [Concomitant]
     Indication: COLITIS ULCERATIVE

REACTIONS (1)
  - Diarrhoea haemorrhagic [Not Recovered/Not Resolved]
